FAERS Safety Report 12384824 (Version 1)
Quarter: 2016Q2

REPORT INFORMATION
  Report Type: Report from Study
  Country: BR (occurrence: BR)
  Receive Date: 20160519
  Receipt Date: 20160519
  Transmission Date: 20160815
  Serious: Yes (Other)
  Sender: FDA-Public Use
  Company Number: PHHY2016BR068256

PATIENT
  Sex: Female
  Weight: 98 kg

DRUGS (1)
  1. TRILEPTAL [Suspect]
     Active Substance: OXCARBAZEPINE
     Indication: BRAIN NEOPLASM
     Dosage: 300 MG, BID
     Route: 048

REACTIONS (8)
  - Pain [Unknown]
  - Dyspnoea [Unknown]
  - Fatigue [Unknown]
  - Product use issue [Unknown]
  - Abasia [Unknown]
  - Hepatic neoplasm [Unknown]
  - Asthenia [Unknown]
  - Abdominal pain [Unknown]
